FAERS Safety Report 24626645 (Version 4)
Quarter: 2025Q1

REPORT INFORMATION
  Report Type: Spontaneous
  Country: US (occurrence: US)
  Receive Date: 20241115
  Receipt Date: 20250108
  Transmission Date: 20250409
  Serious: No
  Sender: SANOFI AVENTIS
  Company Number: US-SANOFI-02290836

PATIENT
  Age: 54 Year
  Sex: Male

DRUGS (1)
  1. LANTUS SOLOSTAR [Suspect]
     Active Substance: INSULIN GLARGINE
     Indication: Diabetes mellitus
     Dosage: 64 IU, QD
     Route: 065
     Dates: start: 2023

REACTIONS (3)
  - Injection site haemorrhage [Unknown]
  - Needle issue [Unknown]
  - Arthritis [Unknown]
